FAERS Safety Report 5945807-4 (Version None)
Quarter: 2008Q4

REPORT INFORMATION
  Report Type: 
  Country: None (occurrence: None)
  Receive Date: 20081104
  Receipt Date: 20081020
  Transmission Date: 20090506
  Serious: Yes (Life-Threatening, Other)
  Sender: FDA-Public Use
  Company Number: 46208

PATIENT

DRUGS (1)
  1. LEUCOVORIN CALCIUM [Suspect]
     Indication: COLON CANCER
     Dates: start: 20070919, end: 20080130

REACTIONS (2)
  - ANGIOEDEMA [None]
  - INFUSION RELATED REACTION [None]
